FAERS Safety Report 9495960 (Version 5)
Quarter: 2015Q2

REPORT INFORMATION
  Report Type: Report from Study
  Country: CA (occurrence: CA)
  Receive Date: 20130904
  Receipt Date: 20150505
  Transmission Date: 20150821
  Serious: Yes (Hospitalization)
  Sender: FDA-Public Use
  Company Number: CA-ROCHE-1269678

PATIENT
  Age: 83 Year
  Sex: Female
  Weight: 65.8 kg

DRUGS (5)
  1. RANIBIZUMAB [Suspect]
     Active Substance: RANIBIZUMAB
     Route: 050
     Dates: start: 20130108
  2. CLONAZEPAM. [Concomitant]
     Active Substance: CLONAZEPAM
  3. ATIVAN [Concomitant]
     Active Substance: LORAZEPAM
  4. RANIBIZUMAB [Suspect]
     Active Substance: RANIBIZUMAB
     Indication: NEOVASCULAR AGE-RELATED MACULAR DEGENERATION
     Route: 050
     Dates: start: 20080328
  5. LISINOPRIL. [Concomitant]
     Active Substance: LISINOPRIL

REACTIONS (9)
  - Anaemia [Recovering/Resolving]
  - Dyspepsia [Unknown]
  - Fall [Unknown]
  - Abdominal pain upper [Unknown]
  - Rib fracture [Unknown]
  - Nausea [Unknown]
  - Vertigo positional [Recovered/Resolved]
  - Musculoskeletal chest pain [Unknown]
  - Sinusitis [Unknown]

NARRATIVE: CASE EVENT DATE: 20130206
